FAERS Safety Report 17055930 (Version 1)
Quarter: 2019Q4

REPORT INFORMATION
  Report Type: Spontaneous
  Country: DE (occurrence: DE)
  Receive Date: 20191120
  Receipt Date: 20191120
  Transmission Date: 20200122
  Serious: Yes (Other)
  Sender: FDA-Public Use
  Company Number: DE-SUN PHARMACEUTICAL INDUSTRIES LTD-2019RR-228358

PATIENT
  Age: 51 Year
  Sex: Female
  Weight: 75 kg

DRUGS (1)
  1. CIPROFLOXACIN. [Suspect]
     Active Substance: CIPROFLOXACIN
     Indication: PRODUCT USED FOR UNKNOWN INDICATION
     Dosage: DOSIERUNG NICHT MEHR BEKANNT, GANZE PACKUNG AUFGEBRAUCHT. ()
     Route: 048
     Dates: start: 20161226, end: 20170102

REACTIONS (9)
  - Tendon disorder [Unknown]
  - Urticaria [Unknown]
  - Gait disturbance [Unknown]
  - Skin burning sensation [Unknown]
  - Tendonitis [Unknown]
  - Pain [Unknown]
  - Suicidal ideation [Recovered/Resolved]
  - Impaired work ability [Unknown]
  - Loss of personal independence in daily activities [Unknown]

NARRATIVE: CASE EVENT DATE: 20161229
